FAERS Safety Report 19983286 (Version 7)
Quarter: 2023Q1

REPORT INFORMATION
  Report Type: Other
  Country: US (occurrence: None)
  Receive Date: 20211022
  Receipt Date: 20230119
  Transmission Date: 20230418
  Serious: Yes (Hospitalization)
  Sender: FDA-Public Use
  Company Number: US-ROCHE-2935380

PATIENT
  Age: 67 Year
  Sex: Male
  Weight: 107.14 kg

DRUGS (11)
  1. ACTEMRA [Suspect]
     Active Substance: TOCILIZUMAB
     Indication: Rheumatoid arthritis
     Dosage: DATE OF SERVICE 16/APR/2021, 22/JUN/2021, 22/JUL/2021, 20/AUG/2021, 17/SEP/2021
     Route: 042
  2. ACTEMRA [Suspect]
     Active Substance: TOCILIZUMAB
     Route: 042
  3. ACETAMINOPHEN [Concomitant]
     Active Substance: ACETAMINOPHEN
     Route: 048
  4. DIPHENHYDRAMINE [Concomitant]
     Active Substance: DIPHENHYDRAMINE
     Route: 048
  5. ONDANSETRON [Concomitant]
     Active Substance: ONDANSETRON
     Route: 048
  6. METOPROLOL [Concomitant]
     Active Substance: METOPROLOL
  7. DILTIAZEM [Concomitant]
     Active Substance: DILTIAZEM
  8. OMEPRAZOLE [Concomitant]
     Active Substance: OMEPRAZOLE
  9. XARELTO [Concomitant]
     Active Substance: RIVAROXABAN
  10. OXYCODONE [Concomitant]
     Active Substance: OXYCODONE
  11. ACETAMINOPHEN [Concomitant]
     Active Substance: ACETAMINOPHEN

REACTIONS (12)
  - Infection [Recovered/Resolved]
  - White blood cell count decreased [Recovered/Resolved]
  - Pain [Recovered/Resolved]
  - Blood pressure increased [Unknown]
  - Ill-defined disorder [Unknown]
  - Ill-defined disorder [Unknown]
  - Neuropathy peripheral [Unknown]
  - Aphonia [Unknown]
  - Injury [Unknown]
  - Intellectual disability [Unknown]
  - Gait inability [Not Recovered/Not Resolved]
  - Inflammation [Not Recovered/Not Resolved]

NARRATIVE: CASE EVENT DATE: 20210501
